FAERS Safety Report 7349888-5 (Version None)
Quarter: 2011Q1

REPORT INFORMATION
  Report Type: 
  Country: None (occurrence: None)
  Receive Date: 20110314
  Receipt Date: 20110304
  Transmission Date: 20110831
  Serious: Yes (Hospitalization)
  Sender: FDA-Public Use
  Company Number: US-SANOFI-AVENTIS-2011SA013900

PATIENT
  Age: 56 Year
  Sex: Female

DRUGS (4)
  1. MULTAQ [Suspect]
     Route: 065
     Dates: start: 20110201
  2. COREG [Concomitant]
  3. COUMADIN [Concomitant]
  4. AVAPRO [Concomitant]

REACTIONS (6)
  - RENAL FAILURE ACUTE [None]
  - INTERNATIONAL NORMALISED RATIO INCREASED [None]
  - CARDIOGENIC SHOCK [None]
  - EJECTION FRACTION DECREASED [None]
  - ISCHAEMIC HEPATITIS [None]
  - AMMONIA INCREASED [None]
